APPROVED DRUG PRODUCT: FLUTICASONE PROPIONATE
Active Ingredient: FLUTICASONE PROPIONATE
Strength: 0.05MG/SPRAY
Dosage Form/Route: SPRAY, METERED;NASAL
Application: A077538 | Product #001 | TE Code: AB
Applicant: APOTEX INC
Approved: Sep 12, 2007 | RLD: No | RS: No | Type: RX